FAERS Safety Report 8832431 (Version 1)
Quarter: 2012Q4

REPORT INFORMATION
  Report Type: Spontaneous
  Country: US (occurrence: None)
  Receive Date: 20121005
  Receipt Date: 20121005
  Transmission Date: 20130627
  Serious: Yes (Hospitalization)
  Sender: FDA-Public Use
  Company Number: 12AE009

PATIENT
  Age: 59 Year
  Sex: Female

DRUGS (3)
  1. ACETAMINOPHEN 500MG 917 [Suspect]
     Indication: SORE THROAT
     Route: 048
     Dates: start: 20120915
  2. VERAPAMIL [Concomitant]
  3. TRANDOLAPRIL [Concomitant]

REACTIONS (2)
  - Anaphylactic reaction [None]
  - Tinnitus [None]
